FAERS Safety Report 7692528-6 (Version None)
Quarter: 2011Q3

REPORT INFORMATION
  Report Type: 
  Country: None (occurrence: None)
  Receive Date: 20110819
  Receipt Date: 20110810
  Transmission Date: 20111222
  Serious: Yes (Hospitalization, Other)
  Sender: FDA-Public Use
  Company Number: US-MERCK-0912USA03686

PATIENT
  Age: 50 Year
  Sex: Female
  Weight: 58 kg

DRUGS (9)
  1. FOSAMAX [Suspect]
     Indication: OSTEOPOROSIS
     Route: 048
     Dates: start: 20051201
  2. ASPIRIN [Concomitant]
     Route: 065
  3. EFFEXOR [Concomitant]
     Indication: DEPRESSION
     Route: 065
  4. LASIX [Concomitant]
     Route: 065
  5. FOSAMAX [Suspect]
     Route: 048
     Dates: start: 20000101, end: 20090601
  6. CARTIA XT [Concomitant]
     Route: 065
  7. FOSAMAX [Suspect]
     Route: 048
     Dates: start: 19950101, end: 20000101
  8. FOSAMAX [Suspect]
     Route: 048
     Dates: start: 19960501
  9. GLYBURIDE [Concomitant]
     Indication: TYPE 2 DIABETES MELLITUS
     Route: 065

REACTIONS (20)
  - ANAEMIA POSTOPERATIVE [None]
  - BURSITIS [None]
  - ASTHMA [None]
  - FRACTURE DELAYED UNION [None]
  - ANXIETY [None]
  - WEIGHT INCREASED [None]
  - FOOT FRACTURE [None]
  - EXOSTOSIS [None]
  - FEMUR FRACTURE [None]
  - SUICIDAL IDEATION [None]
  - OEDEMA PERIPHERAL [None]
  - DEPRESSION [None]
  - ATROPHY [None]
  - HAEMORRHAGIC DIATHESIS [None]
  - FALL [None]
  - FRACTURE NONUNION [None]
  - SPINAL OSTEOARTHRITIS [None]
  - LACERATION [None]
  - OSTEOARTHRITIS [None]
  - GROIN PAIN [None]
